FAERS Safety Report 6325441-7 (Version None)
Quarter: 2009Q3

REPORT INFORMATION
  Report Type: 
  Country: None (occurrence: None)
  Receive Date: 20090824
  Receipt Date: 20090818
  Transmission Date: 20100115
  Serious: Yes (Hospitalization, Other)
  Sender: FDA-Public Use
  Company Number: DE-BAYER-200928426GPV

PATIENT
  Age: 42 Year
  Sex: Female
  Weight: 65 kg

DRUGS (2)
  1. BETAFERON [Suspect]
     Indication: SECONDARY PROGRESSIVE MULTIPLE SCLEROSIS
     Route: 058
     Dates: start: 20010401
  2. FLUOXETINE [Concomitant]
     Indication: AFFECTIVE DISORDER
     Dates: start: 20070901, end: 20090401

REACTIONS (1)
  - PULMONARY TUBERCULOSIS [None]
